FAERS Safety Report 6525632-6 (Version None)
Quarter: 2009Q4

REPORT INFORMATION
  Report Type: 
  Country: None (occurrence: None)
  Receive Date: 20091228
  Receipt Date: 20091104
  Transmission Date: 20100525
  Serious: Yes (Hospitalization)
  Sender: FDA-Public Use
  Company Number: 003298

PATIENT
  Age: 89 Year
  Sex: Male
  Weight: 60 kg

DRUGS (9)
  1. XYZAL (XYZAL) [Suspect]
     Dosage: 5 MG ORAL
     Route: 048
     Dates: start: 20070615, end: 20070622
  2. PREDNISOLONE [Suspect]
     Dosage: 20 MG ORAL
     Route: 048
     Dates: start: 20070615, end: 20070622
  3. SALBUTAMOL (SALBUTAMOL) [Suspect]
     Dosage: RESPIRATORY INHALATION
     Route: 055
     Dates: start: 20070615, end: 20070622
  4. LEVODROPROPIZINE [Concomitant]
  5. DOXOFYLLINE [Concomitant]
  6. KETOPROFEN [Concomitant]
  7. MAGNESIUM OXIDE [Concomitant]
  8. NORMAL SALINE [Concomitant]
  9. CIMETIDINE [Concomitant]

REACTIONS (4)
  - ACCIDENT [None]
  - COMPRESSION FRACTURE [None]
  - DYSPNOEA [None]
  - PNEUMONIA [None]
